FAERS Safety Report 8962058 (Version 1)
Quarter: 2012Q4

REPORT INFORMATION
  Report Type: 
  Country: US (occurrence: US)
  Receive Date: 20121213
  Receipt Date: 20121213
  Transmission Date: 20130627
  Serious: Yes (Hospitalization, Other)
  Sender: FDA-Public Use
  Company Number: US-JNJCP-30000136619

PATIENT
  Age: 54 Year
  Sex: Female

DRUGS (1)
  1. NEUTROGENA INTENSIFIED DAY MOISTURE SPF15 [Suspect]
     Route: 061
     Dates: start: 20121102, end: 20121103

REACTIONS (2)
  - Accidental exposure to product [Recovering/Resolving]
  - Lip swelling [Recovering/Resolving]
